FAERS Safety Report 6921206-3 (Version None)
Quarter: 2010Q3

REPORT INFORMATION
  Report Type: 
  Country: None (occurrence: None)
  Receive Date: 20100812
  Receipt Date: 20100804
  Transmission Date: 20110219
  Serious: Yes (Hospitalization)
  Sender: FDA-Public Use
  Company Number: A0865990A

PATIENT
  Age: 76 Year
  Sex: Male

DRUGS (2)
  1. AVANDAMET [Suspect]
     Dosage: 1TAB PER DAY
     Route: 065
     Dates: start: 20040401, end: 20070101
  2. AVANDIA [Suspect]
     Indication: DIABETES MELLITUS
     Dosage: 8MG UNKNOWN
     Route: 065
     Dates: start: 20060628, end: 20070105

REACTIONS (6)
  - ATRIAL FIBRILLATION [None]
  - CARDIAC FAILURE CONGESTIVE [None]
  - CORONARY ARTERIAL STENT INSERTION [None]
  - DEPRESSION [None]
  - EMOTIONAL DISTRESS [None]
  - VERTIGO [None]
